FAERS Safety Report 15322764 (Version 1)
Quarter: 2018Q3

REPORT INFORMATION
  Report Type: Spontaneous
  Country: US (occurrence: US)
  Receive Date: 20180821
  Receipt Date: 20180821
  Transmission Date: 20181010
  Serious: Yes (Disabling)
  Sender: FDA-Public Use
  Company Number: None

PATIENT
  Age: 65 Year
  Sex: Male
  Weight: 79.38 kg

DRUGS (7)
  1. ALEVE [Concomitant]
     Active Substance: NAPROXEN SODIUM
  2. VITAMIN D3 [Concomitant]
     Active Substance: CHOLECALCIFEROL
  3. PROLIA [Suspect]
     Active Substance: DENOSUMAB
     Indication: BONE DENSITY ABNORMAL
     Dosage: ?          QUANTITY:1 SYRINGE;?
     Dates: start: 20170614, end: 20170614
  4. HORMONE SHOTS [Concomitant]
  5. ELIGARD [Concomitant]
     Active Substance: LEUPROLIDE ACETATE
  6. CALCIUM [Concomitant]
     Active Substance: CALCIUM
  7. MOVE FREE JOINT SUPPLEMENT [Concomitant]

REACTIONS (12)
  - Pain in extremity [None]
  - Fatigue [None]
  - Neck pain [None]
  - Joint lock [None]
  - Motor dysfunction [None]
  - Muscle tightness [None]
  - Back pain [None]
  - Arthralgia [None]
  - Bone pain [None]
  - Trigger finger [None]
  - Pain [None]
  - Peripheral swelling [None]

NARRATIVE: CASE EVENT DATE: 201707
